FAERS Safety Report 4606624-0 (Version None)
Quarter: 2005Q2

REPORT INFORMATION
  Report Type: 
  Country: None (occurrence: None)
  Receive Date: 20050223
  Receipt Date: 20040416
  Transmission Date: 20051028
  Serious: Yes (Life-Threatening, Disabling)
  Sender: FDA-Public Use
  Company Number: WAES 0404USA01683

PATIENT
  Age: 66 Year
  Sex: Female

DRUGS (3)
  1. ZOCOR [Suspect]
     Indication: BLOOD CHOLESTEROL INCREASED
     Dosage: 20 MG/DAILY/PO
     Route: 048
     Dates: start: 20031101, end: 20040408
  2. FOSAMAX [Concomitant]
  3. LEVOXYL [Concomitant]

REACTIONS (2)
  - MUSCLE ENZYME INCREASED [None]
  - MUSCULAR WEAKNESS [None]
